FAERS Safety Report 7920497-X (Version None)
Quarter: 2011Q4

REPORT INFORMATION
  Report Type: 
  Country: None (occurrence: None)
  Receive Date: 20111117
  Receipt Date: 20111111
  Transmission Date: 20120403
  Serious: Yes (Hospitalization)
  Sender: FDA-Public Use
  Company Number: US-VERTEX PHARMACEUTICALS INC.-AE-2011-003351

PATIENT
  Sex: Female
  Weight: 149.37 kg

DRUGS (3)
  1. INCIVEK [Suspect]
     Indication: HEPATITIS C
     Route: 048
     Dates: start: 20111026, end: 20111110
  2. PEGASYS [Concomitant]
     Indication: HEPATITIS C
     Dates: start: 20111026, end: 20111110
  3. RIBAVIRIN [Concomitant]
     Indication: HEPATITIS C
     Dates: start: 20111026, end: 20111110

REACTIONS (4)
  - DYSPNOEA [None]
  - CONFUSIONAL STATE [None]
  - JAUNDICE [None]
  - AMMONIA INCREASED [None]
